FAERS Safety Report 4918009-8 (Version None)
Quarter: 2006Q1

REPORT INFORMATION
  Report Type: 
  Country: None (occurrence: None)
  Receive Date: 20060221
  Receipt Date: 20050930
  Transmission Date: 20060701
  Serious: Yes (Hospitalization, Disabling, Other)
  Sender: FDA-Public Use
  Company Number: PR-MERCK-0510USA01645

PATIENT
  Age: 23 Year
  Sex: Male
  Weight: 55 kg

DRUGS (1)
  1. VIOXX [Suspect]
     Indication: WRIST SURGERY
     Route: 048
     Dates: start: 20010830, end: 20011130

REACTIONS (18)
  - ANGINA PECTORIS [None]
  - ANGIOPATHY [None]
  - ARRHYTHMIA [None]
  - ARTHRALGIA [None]
  - CARDIAC FAILURE [None]
  - CARDIOVASCULAR DISORDER [None]
  - CEREBROVASCULAR ACCIDENT [None]
  - HEPATIC PAIN [None]
  - MAJOR DEPRESSION [None]
  - MYOCARDIAL INFARCTION [None]
  - ORGAN FAILURE [None]
  - PULMONARY EMBOLISM [None]
  - PYREXIA [None]
  - RENAL FAILURE [None]
  - RETINAL HAEMORRHAGE [None]
  - SCIATICA [None]
  - SHOULDER PAIN [None]
  - THROMBOSIS [None]
